FAERS Safety Report 4263632-X (Version None)
Quarter: 2004Q1

REPORT INFORMATION
  Report Type: 
  Country: None (occurrence: None)
  Receive Date: 20040102
  Receipt Date: 20031219
  Transmission Date: 20041129
  Serious: Yes (Other)
  Sender: FDA-Public Use
  Company Number: 2003125880

PATIENT
  Sex: Male

DRUGS (2)
  1. TAHOR (ATORVASTATIN) [Suspect]
     Indication: PROPHYLAXIS
     Dosage: 10 MG
     Dates: start: 20010101, end: 20030101
  2. BCG VACCINE (BCG VACCINE) [Suspect]
     Indication: BLADDER CANCER
     Dosage: OTHER
     Route: 050
     Dates: end: 20030101

REACTIONS (3)
  - BLADDER CANCER [None]
  - DRUG INTERACTION [None]
  - MYALGIA [None]
